FAERS Safety Report 5891616-4 (Version None)
Quarter: 2008Q3

REPORT INFORMATION
  Report Type: 
  Country: None (occurrence: None)
  Receive Date: 20080922
  Receipt Date: 20080910
  Transmission Date: 20090109
  Serious: Yes (Death)
  Sender: FDA-Public Use
  Company Number: US-PFIZER INC-2004070966

PATIENT
  Age: 46 Year

DRUGS (2)
  1. DOXEPIN HCL [Suspect]
     Indication: ILL-DEFINED DISORDER
     Route: 048
  2. CLONAZEPAM [Suspect]
     Indication: ILL-DEFINED DISORDER
     Route: 048

REACTIONS (1)
  - INTENTIONAL DRUG MISUSE [None]
